FAERS Safety Report 8418202 (Version 3)
Quarter: 2013Q2

REPORT INFORMATION
  Report Type: Report from Study
  Country: DE (occurrence: DE)
  Receive Date: 20120221
  Receipt Date: 20130625
  Transmission Date: 20140414
  Serious: Yes (Death, Life-Threatening, Hospitalization)
  Sender: FDA-Public Use
  Company Number: DE-MILLENNIUM PHARMACEUTICALS, INC.-2012-00055

PATIENT
  Sex: 0

DRUGS (5)
  1. VELCADE [Suspect]
     Indication: PLASMA CELL MYELOMA
     Dosage: 1.6 UNK, UNK
     Route: 065
     Dates: start: 20111104, end: 20111227
  2. COTRIM [Concomitant]
     Indication: PROPHYLAXIS
     Dosage: 960 MG, UNK
     Dates: start: 201101
  3. PALLADONE                          /00080902/ [Concomitant]
     Dosage: 12 MG, UNK
     Route: 048
     Dates: start: 20111111
  4. ACICLOVIR [Concomitant]
     Indication: PROPHYLAXIS
     Dosage: 300 MG, UNK
     Route: 048
     Dates: start: 20111104
  5. NOVALGIN                           /00169801/ [Concomitant]
     Dosage: 2000 MG, UNK
     Dates: start: 20110905

REACTIONS (5)
  - Postoperative wound infection [Fatal]
  - Cachexia [Fatal]
  - Osteosynthesis [Recovering/Resolving]
  - Gastric ulcer [Recovered/Resolved with Sequelae]
  - Gastrointestinal haemorrhage [Recovered/Resolved with Sequelae]
